FAERS Safety Report 7153518-5 (Version None)
Quarter: 2010Q4

REPORT INFORMATION
  Report Type: 
  Country: None (occurrence: None)
  Receive Date: 20101213
  Receipt Date: 20101203
  Transmission Date: 20110411
  Serious: Yes (Death)
  Sender: FDA-Public Use
  Company Number: Z0005417B

PATIENT
  Sex: Female
  Weight: 57.6 kg

DRUGS (1)
  1. PAZOPANIB [Suspect]
     Dosage: 800MG PER DAY
     Route: 048
     Dates: start: 20091119

REACTIONS (1)
  - PNEUMONIA [None]
